FAERS Safety Report 6457468-9 (Version None)
Quarter: 2009Q4

REPORT INFORMATION
  Report Type: 
  Country: None (occurrence: None)
  Receive Date: 20091125
  Receipt Date: 20091118
  Transmission Date: 20100525
  Serious: Yes (Hospitalization)
  Sender: FDA-Public Use
  Company Number: US-JNJFOC-20091102244

PATIENT
  Sex: Male
  Weight: 50 kg

DRUGS (6)
  1. REMICADE [Suspect]
     Route: 042
     Dates: start: 20090721, end: 20090831
  2. REMICADE [Suspect]
     Indication: COLITIS ULCERATIVE
     Route: 042
     Dates: start: 20090721, end: 20090831
  3. 5-AMINOSALICYLIC ACID [Concomitant]
  4. PREDNISONE [Concomitant]
  5. PRILOSEC [Concomitant]
  6. M.V.I. [Concomitant]
     Route: 048

REACTIONS (3)
  - BRONCHITIS [None]
  - COLITIS ULCERATIVE [None]
  - INFLUENZA [None]
